FAERS Safety Report 7966394-5 (Version None)
Quarter: 2011Q4

REPORT INFORMATION
  Report Type: 
  Country: None (occurrence: None)
  Receive Date: 20111208
  Receipt Date: 20111129
  Transmission Date: 20120403
  Serious: Yes (Hospitalization, Other)
  Sender: FDA-Public Use
  Company Number: US-MILLENNIUM PHARMACEUTICALS, INC.-2011-06028

PATIENT
  Age: 53 Year
  Sex: Male
  Weight: 79.2 kg

DRUGS (2)
  1. DECADRON [Concomitant]
     Indication: PRODUCT USED FOR UNKNOWN INDICATION
     Dosage: UNK
     Dates: start: 20110328
  2. VELCADE [Suspect]
     Indication: MULTIPLE MYELOMA
     Dosage: 1.3 MG/M2, CYCLIC
     Route: 042
     Dates: start: 20110328

REACTIONS (5)
  - CHILLS [None]
  - PULMONARY EMBOLISM [None]
  - CLOSTRIDIUM DIFFICILE COLITIS [None]
  - FEBRILE NEUTROPENIA [None]
  - RASH ERYTHEMATOUS [None]
